FAERS Safety Report 4344433-0 (Version None)
Quarter: 2004Q2

REPORT INFORMATION
  Report Type: 
  Country: None (occurrence: None)
  Receive Date: 20040419
  Receipt Date: 20040413
  Transmission Date: 20050107
  Serious: Yes (Hospitalization)
  Sender: FDA-Public Use
  Company Number: 03P-047-0238437-00

PATIENT
  Age: 5 Year
  Sex: Male
  Weight: 20 kg

DRUGS (2)
  1. DEPAKOTE [Suspect]
     Indication: EPILEPSY
     Dosage: 500 MG, PER ORAL
     Route: 048
     Dates: end: 20030811
  2. ASCORBIC ACID [Concomitant]

REACTIONS (4)
  - ASTHENIA [None]
  - BONE MARROW DEPRESSION [None]
  - HEADACHE [None]
  - PYREXIA [None]
